FAERS Safety Report 12186297 (Version 1)
Quarter: 2016Q1

REPORT INFORMATION
  Report Type: Spontaneous
  Country: KR (occurrence: KR)
  Receive Date: 20160317
  Receipt Date: 20160317
  Transmission Date: 20160526
  Serious: Yes (Hospitalization)
  Sender: FDA-Public Use
  Company Number: KR-ACCORD-038755

PATIENT
  Age: 59 Year
  Sex: Female

DRUGS (3)
  1. OXALIPLATIN. [Concomitant]
     Active Substance: OXALIPLATIN
     Indication: RECTAL CANCER
     Dosage: RECEIVED 85 MG/M2 ON DAY 1 OF 1ST CYCLE OF FOLFOX4 CHEMOTHERAPY REGIMEN
  2. FLUOROURACIL. [Suspect]
     Active Substance: FLUOROURACIL
     Indication: RECTAL CANCER
     Dosage: INITIALLY RECEIVED IV BOLUS 400 MG/M2 AND 600 MG/M2 BY CONTINUOUS INFUSION FOR 22 HRS ON DAY 1 AND 2
     Route: 042
  3. LEVOFOLINIC ACID [Concomitant]
     Active Substance: LEVOLEUCOVORIN
     Indication: RECTAL CANCER
     Dosage: RECEIVED 100 MG/M2 ON DAY 1 AND DAY 2 OF 1ST CYCLE OF FOLFOX4 CHEMOTHERAPY REGIMEN.

REACTIONS (1)
  - Hyperammonaemic encephalopathy [Recovering/Resolving]
